FAERS Safety Report 11515698 (Version 3)
Quarter: 2017Q1

REPORT INFORMATION
  Report Type: Spontaneous
  Country: JP (occurrence: JP)
  Receive Date: 20150916
  Receipt Date: 20170207
  Transmission Date: 20170428
  Serious: Yes (Hospitalization)
  Sender: FDA-Public Use
  Company Number: JP-BAXTER-2015BAX050989

PATIENT
  Age: 72 Year
  Sex: Female
  Weight: 52.8 kg

DRUGS (3)
  1. SUPRANE [Suspect]
     Active Substance: DESFLURANE
     Indication: GENERAL ANAESTHESIA
     Route: 055
  2. REMIFENTANIL [Concomitant]
     Active Substance: REMIFENTANIL
     Indication: GENERAL ANAESTHESIA
     Route: 065
  3. LANDIOLOL [Concomitant]
     Active Substance: LANDIOLOL
     Indication: PRODUCT USED FOR UNKNOWN INDICATION
     Route: 065

REACTIONS (1)
  - Stress cardiomyopathy [Recovered/Resolved]

NARRATIVE: CASE EVENT DATE: 20150130
